FAERS Safety Report 9752211 (Version 1)
Quarter: 2013Q4

REPORT INFORMATION
  Report Type: Spontaneous
  Country: US (occurrence: None)
  Receive Date: 20131212
  Receipt Date: 20131212
  Transmission Date: 20140711
  Serious: Yes (Hospitalization, Disabling, Other)
  Sender: FDA-Public Use
  Company Number: None

PATIENT
  Sex: Male

DRUGS (4)
  1. TRUVADA [Suspect]
     Indication: HIV INFECTION
     Dosage: 200/300, T PILL EA DAY, DAILY, MOUTH
     Route: 048
     Dates: end: 201309
  2. MULTI-VIT [Concomitant]
  3. VIT C + 20 DO D3 [Concomitant]
  4. APAP [Concomitant]

REACTIONS (1)
  - Renal failure acute [None]
